FAERS Safety Report 7322921-2 (Version None)
Quarter: 2011Q1

REPORT INFORMATION
  Report Type: 
  Country: None (occurrence: None)
  Receive Date: 20110301
  Receipt Date: 20110214
  Transmission Date: 20110831
  Serious: Yes (Hospitalization, Other)
  Sender: FDA-Public Use
  Company Number: PHHY2011US15889

PATIENT

DRUGS (1)
  1. RECLAST [Suspect]
     Indication: OSTEOPOROSIS
     Dosage: UNK
     Dates: start: 20090201

REACTIONS (10)
  - MYOCARDIAL INFARCTION [None]
  - BONE PAIN [None]
  - GASTROOESOPHAGEAL REFLUX DISEASE [None]
  - THROMBOSIS [None]
  - ATRIAL FIBRILLATION [None]
  - PAIN [None]
  - JOINT SPRAIN [None]
  - CHEST PAIN [None]
  - EXOSTOSIS [None]
  - THROAT IRRITATION [None]
